FAERS Safety Report 5056305-7 (Version None)
Quarter: 2006Q3

REPORT INFORMATION
  Report Type: 
  Country: None (occurrence: None)
  Receive Date: 20060717
  Receipt Date: 20060629
  Transmission Date: 20061208
  Serious: Yes (Hospitalization)
  Sender: FDA-Public Use
  Company Number: MEDI-0004304(1)

PATIENT
  Age: 4 Month

DRUGS (4)
  1. SYNAGIS [Suspect]
     Indication: ANTIVIRAL PROPHYLAXIS
     Dosage: 100 MG, 1 IN 30 D, INTRAMUSCULAR;SEE IMAGE
     Route: 030
     Dates: start: 20051014, end: 20051014
  2. SYNAGIS [Suspect]
     Indication: ANTIVIRAL PROPHYLAXIS
     Dosage: 100 MG, 1 IN 30 D, INTRAMUSCULAR;SEE IMAGE
     Route: 030
     Dates: start: 20051106
  3. SYNAGIS [Suspect]
     Indication: ANTIVIRAL PROPHYLAXIS
     Dosage: 100 MG, 1 IN 30 D, INTRAMUSCULAR;SEE IMAGE
     Route: 030
     Dates: start: 20051208
  4. SYNAGIS [Suspect]
     Indication: ANTIVIRAL PROPHYLAXIS
     Dosage: 100 MG, 1 IN 30 D, INTRAMUSCULAR;SEE IMAGE
     Route: 030
     Dates: start: 20060103

REACTIONS (2)
  - BRONCHIAL OBSTRUCTION [None]
  - CARDIAC FAILURE [None]
